FAERS Safety Report 10253918 (Version 1)
Quarter: 2014Q2

REPORT INFORMATION
  Report Type: Report from Study
  Country: US (occurrence: US)
  Receive Date: 20140623
  Receipt Date: 20140623
  Transmission Date: 20141212
  Serious: Yes (Hospitalization)
  Sender: FDA-Public Use
  Company Number: US-ABBVIE-14P-163-1247736-00

PATIENT
  Age: 30 Year
  Sex: Female
  Weight: 44.49 kg

DRUGS (6)
  1. HUMIRA [Suspect]
     Indication: CROHN^S DISEASE
     Dates: start: 2012
  2. HUMIRA [Suspect]
     Dates: start: 2012, end: 2012
  3. HUMIRA [Suspect]
     Dates: start: 2012, end: 201403
  4. HUMIRA [Suspect]
     Dates: start: 201403
  5. PREDNISONE [Concomitant]
     Indication: CROHN^S DISEASE
  6. TRAMADOL [Concomitant]
     Indication: PAIN

REACTIONS (8)
  - Constipation [Not Recovered/Not Resolved]
  - Crohn^s disease [Recovering/Resolving]
  - Abdominal pain [Recovering/Resolving]
  - Nausea [Recovered/Resolved]
  - Vomiting [Recovered/Resolved]
  - Enteritis [Not Recovered/Not Resolved]
  - Drug dose omission [Unknown]
  - Drug dose omission [Unknown]
